FAERS Safety Report 19994509 (Version 2)
Quarter: 2022Q1

REPORT INFORMATION
  Report Type: Report from Study
  Country: CA (occurrence: CA)
  Receive Date: 20211026
  Receipt Date: 20220325
  Transmission Date: 20220423
  Serious: Yes (Hospitalization)
  Sender: FDA-Public Use
  Company Number: CA-ABBVIE-21K-028-4130812-00

PATIENT
  Sex: Female

DRUGS (2)
  1. HUMIRA [Suspect]
     Active Substance: ADALIMUMAB
     Indication: Psoriatic arthropathy
     Route: 058
     Dates: start: 20181218, end: 202203
  2. METHOTREXATE [Concomitant]
     Active Substance: METHOTREXATE
     Indication: Product used for unknown indication
     Dates: end: 202203

REACTIONS (16)
  - Haemoptysis [Unknown]
  - Sputum discoloured [Unknown]
  - Abdominal pain upper [Unknown]
  - Diarrhoea haemorrhagic [Unknown]
  - Bacterial infection [Unknown]
  - Irritable bowel syndrome [Unknown]
  - Breast mass [Unknown]
  - Fatigue [Unknown]
  - Gastrointestinal disorder [Unknown]
  - Gastritis [Unknown]
  - Gastrointestinal inflammation [Unknown]
  - Cyst [Unknown]
  - Abdominal pain upper [Unknown]
  - Muscle spasms [Unknown]
  - Vomiting [Unknown]
  - Therapeutic product effect decreased [Unknown]

NARRATIVE: CASE EVENT DATE: 20210101
